FAERS Safety Report 8009451-X (Version None)
Quarter: 2011Q4

REPORT INFORMATION
  Report Type: 
  Country: None (occurrence: None)
  Receive Date: 20111227
  Receipt Date: 20111220
  Transmission Date: 20120403
  Serious: Yes (Hospitalization, Other)
  Sender: FDA-Public Use
  Company Number: FR-PFIZER INC-2011308192

PATIENT
  Age: 38 Year
  Sex: Male

DRUGS (6)
  1. ZOLOFT [Suspect]
     Dosage: 50 MG, 1X/DAY
     Route: 048
     Dates: start: 19970101
  2. MEGAMAG [Concomitant]
     Dosage: 4 DF DAILY
  3. IMURAN [Suspect]
     Dosage: UNK
     Route: 048
     Dates: start: 19970101, end: 20000101
  4. SPECIAFOLDINE [Concomitant]
     Dosage: TWICE PER WEEK
  5. LIORESAL [Suspect]
     Dosage: 10 MG, 2X/DAY
     Route: 048
  6. RUBOZINC [Concomitant]
     Dosage: 4 DF DAILY

REACTIONS (9)
  - OESOPHAGEAL VARICES HAEMORRHAGE [None]
  - HEPATITIS VIRAL [None]
  - ASCITES [None]
  - ALANINE AMINOTRANSFERASE INCREASED [None]
  - CERULOPLASMIN DECREASED [None]
  - NODULAR REGENERATIVE HYPERPLASIA [None]
  - PORTAL HYPERTENSION [None]
  - GAMMA-GLUTAMYLTRANSFERASE INCREASED [None]
  - THROMBOCYTOPENIA [None]
